FAERS Safety Report 13296301 (Version 1)
Quarter: 2017Q1

REPORT INFORMATION
  Report Type: Spontaneous
  Country: US (occurrence: US)
  Receive Date: 20170304
  Receipt Date: 20170304
  Transmission Date: 20170428
  Serious: Yes (Other)
  Sender: FDA-Public Use
  Company Number: US-AMGEN-USASP2017029810

PATIENT
  Age: 66 Year
  Sex: Female
  Weight: 76.9 kg

DRUGS (20)
  1. LORAZEPAM. [Concomitant]
     Active Substance: LORAZEPAM
     Dosage: 0.5 MG, BID
     Route: 048
     Dates: start: 20170117
  2. LETROZOLE. [Concomitant]
     Active Substance: LETROZOLE
     Dosage: 2.5 MG, QD
     Route: 048
  3. PERCOCET [Concomitant]
     Active Substance: ACETAMINOPHEN\OXYCODONE HYDROCHLORIDE
     Dosage: UNK UNK, QD
  4. XGEVA [Suspect]
     Active Substance: DENOSUMAB
     Indication: BONE CANCER
  5. DURAGESIC [Concomitant]
     Active Substance: FENTANYL
     Dosage: 25 MCG/HR, ONCE IN 72HR
     Route: 062
  6. ACETAMINOPHEN. [Concomitant]
     Active Substance: ACETAMINOPHEN
     Dosage: 325 MG, Q6H
     Route: 048
  7. STIOLTO RESPIMAT [Concomitant]
     Active Substance: OLODATEROL HYDROCHLORIDE\TIOTROPIUM BROMIDE MONOHYDRATE
     Indication: CHRONIC OBSTRUCTIVE PULMONARY DISEASE
     Dosage: 2.5 (MCG/ACT), QD
  8. XGEVA [Suspect]
     Active Substance: DENOSUMAB
     Indication: BREAST CANCER FEMALE
     Dosage: 120 MG, Q4WK
     Route: 058
  9. FUROSEMIDE. [Concomitant]
     Active Substance: FUROSEMIDE
     Dosage: 20 MG, QD
     Route: 048
  10. ONDANSETRON HCL [Concomitant]
     Active Substance: ONDANSETRON HYDROCHLORIDE
     Dosage: 8 MG, TID
     Route: 048
  11. PROAIR HFA [Concomitant]
     Active Substance: ALBUTEROL SULFATE
  12. OMEPRAZOLE. [Concomitant]
     Active Substance: OMEPRAZOLE
     Dosage: 40 MG, BID
     Route: 048
  13. IBRANCE [Concomitant]
     Active Substance: PALBOCICLIB
     Dosage: 125 MG, QD
     Route: 048
  14. PROMETHAZINE HCL [Concomitant]
     Active Substance: PROMETHAZINE HYDROCHLORIDE
     Dosage: 25 MG, Q6H
     Route: 048
  15. LAXISOFT [Concomitant]
     Dosage: 20 MG, QD
     Route: 048
     Dates: start: 20160617
  16. OXYCODONE [Concomitant]
     Active Substance: OXYCODONE
     Dosage: 5 MG, Q6H
     Dates: start: 20170117
  17. PALBOCICLIB [Concomitant]
     Active Substance: PALBOCICLIB
     Dosage: 125 MG, QD (FOR 21 DAYS)
     Route: 048
  18. OXYCODONE HYDROCHLORIDE. [Concomitant]
     Active Substance: OXYCODONE HYDROCHLORIDE
     Dosage: UNK, PRN
     Route: 048
  19. CALCIUM + VITAMIN D [Concomitant]
     Active Substance: CALCIUM\VITAMIN D
     Dosage: 1000 MG, QD
  20. REMERON [Concomitant]
     Active Substance: MIRTAZAPINE

REACTIONS (13)
  - Weight decreased [Unknown]
  - Spinal pain [Unknown]
  - Breast cancer metastatic [Unknown]
  - Gastric cancer [Unknown]
  - Somnolence [Unknown]
  - Back pain [Unknown]
  - Fractured sacrum [Unknown]
  - Fatigue [Unknown]
  - Appetite disorder [Recovered/Resolved]
  - Depression [Recovered/Resolved]
  - Pain [Unknown]
  - Nausea [Unknown]
  - Arthralgia [Unknown]
